FAERS Safety Report 8400082-6 (Version None)
Quarter: 2012Q2

REPORT INFORMATION
  Report Type: 
  Country: None (occurrence: None)
  Receive Date: 20120531
  Receipt Date: 20120525
  Transmission Date: 20120825
  Serious: Yes (Life-Threatening, Hospitalization, Other)
  Sender: FDA-Public Use
  Company Number: JP-PFIZER INC-2012112583

PATIENT
  Age: 43 Year
  Sex: Female
  Weight: 56 kg

DRUGS (2)
  1. SULFASALAZINE [Suspect]
     Indication: COLITIS ULCERATIVE
     Dosage: 4 DF, 2X/DAY
     Route: 048
     Dates: start: 20111206, end: 20111221
  2. RILMAZAFONE HYDROCHLORIDE [Concomitant]
     Dosage: UNK

REACTIONS (6)
  - PYREXIA [None]
  - PULMONARY CONGESTION [None]
  - OEDEMA [None]
  - RASH GENERALISED [None]
  - PLEURAL EFFUSION [None]
  - DYSPNOEA [None]
